FAERS Safety Report 9283350 (Version 1)
Quarter: 2013Q2

REPORT INFORMATION
  Report Type: Spontaneous
  Country: US (occurrence: US)
  Receive Date: 20130510
  Receipt Date: 20130510
  Transmission Date: 20140414
  Serious: No
  Sender: FDA-Public Use
  Company Number: US-GLAXOSMITHKLINE-A1000274A

PATIENT
  Age: 62 Year
  Sex: Female

DRUGS (6)
  1. TYKERB [Suspect]
     Indication: BREAST CANCER
     Dosage: 750MG PER DAY
     Route: 048
     Dates: start: 20121103
  2. XELODA [Concomitant]
  3. FLEXERIL [Concomitant]
  4. XANAX [Concomitant]
  5. VICODIN [Concomitant]
  6. DIOVAN [Concomitant]

REACTIONS (3)
  - Tinnitus [Not Recovered/Not Resolved]
  - Dry eye [Unknown]
  - Eye pain [Unknown]
